FAERS Safety Report 15355023 (Version 2)
Quarter: 2018Q3

REPORT INFORMATION
  Report Type: Spontaneous
  Country: JP (occurrence: JP)
  Receive Date: 20180906
  Receipt Date: 20180927
  Transmission Date: 20181010
  Serious: Yes (Hospitalization, Other)
  Sender: FDA-Public Use
  Company Number: JP-SUN PHARMACEUTICAL INDUSTRIES LTD-2018R3-183455

PATIENT
  Age: 33 Year
  Sex: Female
  Weight: 65.4 kg

DRUGS (2)
  1. APRESOLINE HYDROCHLORIDE [Suspect]
     Active Substance: HYDRALAZINE HYDROCHLORIDE
     Indication: GESTATIONAL HYPERTENSION
     Dosage: UNK
     Route: 048
  2. RITODRINE HYDROCHLORIDE [Concomitant]
     Active Substance: RITODRINE HYDROCHLORIDE
     Indication: ABDOMINAL DISTENSION
     Dosage: UNK
     Route: 048

REACTIONS (3)
  - Hyperthyroidism [Recovering/Resolving]
  - Exposure during pregnancy [Unknown]
  - Premature labour [Unknown]
